FAERS Safety Report 7118496-3 (Version None)
Quarter: 2010Q4

REPORT INFORMATION
  Report Type: 
  Country: None (occurrence: None)
  Receive Date: 20101123
  Receipt Date: 20101115
  Transmission Date: 20110411
  Serious: Yes (Other)
  Sender: FDA-Public Use
  Company Number: US-SANOFI-AVENTIS-2010SA043838

PATIENT
  Age: 85 Year
  Sex: Female

DRUGS (11)
  1. MULTAQ [Suspect]
     Indication: ATRIAL FIBRILLATION
     Route: 048
     Dates: start: 20100310
  2. COUMADIN [Suspect]
     Route: 048
  3. SOTALOL [Concomitant]
  4. ACTOS [Concomitant]
  5. ASPIRIN [Concomitant]
  6. LASIX [Concomitant]
     Dosage: M,W,F
  7. LEVOXYL [Concomitant]
  8. METFORMIN HCL [Concomitant]
  9. PEPCID [Concomitant]
     Route: 048
  10. PLAVIX [Concomitant]
     Route: 048
  11. RAMIPRIL [Concomitant]
     Route: 048

REACTIONS (3)
  - EPISTAXIS [None]
  - HAEMATOCHEZIA [None]
  - INTERNATIONAL NORMALISED RATIO INCREASED [None]
